FAERS Safety Report 10067502 (Version 2)
Quarter: 2014Q2

REPORT INFORMATION
  Report Type: Spontaneous
  Country: IT (occurrence: None)
  Receive Date: 20140407
  Receipt Date: 20140428
  Transmission Date: 20141212
  Serious: Yes (Hospitalization)
  Sender: FDA-Public Use
  Company Number: 2014AP002550

PATIENT
  Age: 72 Year
  Sex: Female

DRUGS (4)
  1. CLARITHROMYCIN (CLARITHROMYCIN) [Suspect]
     Route: 048
     Dates: start: 20140315, end: 20140316
  2. PANTOPAN (PANTOPRAZOLE SODIUM) [Concomitant]
  3. INEGY (SIMVASTATIN, EZETIMIBE) [Concomitant]
  4. ZOPRAZIDE (HYDROCHLOROTHIAZIDE, ZOFENOPRIL CALCIUM) [Concomitant]

REACTIONS (1)
  - Rash scarlatiniform [None]
